FAERS Safety Report 18174306 (Version 1)
Quarter: 2020Q3

REPORT INFORMATION
  Report Type: Spontaneous
  Country: US (occurrence: US)
  Receive Date: 20200820
  Receipt Date: 20200820
  Transmission Date: 20201103
  Serious: Yes (Hospitalization)
  Sender: FDA-Public Use
  Company Number: None

PATIENT
  Sex: Female

DRUGS (8)
  1. CAROSPIR SUS [Concomitant]
  2. FUROSEMIDE. [Concomitant]
     Active Substance: FUROSEMIDE
  3. ASPIRIN. [Concomitant]
     Active Substance: ASPIRIN
  4. SILDENAFIL. [Suspect]
     Active Substance: SILDENAFIL
     Indication: PULMONARY ARTERIAL HYPERTENSION
     Route: 048
     Dates: start: 20190423
  5. WARFARIN [Concomitant]
     Active Substance: WARFARIN
  6. BUMETANIDE. [Concomitant]
     Active Substance: BUMETANIDE
  7. DIURIL [Concomitant]
     Active Substance: CHLOROTHIAZIDE
  8. FERROUS SULF [Concomitant]
     Active Substance: FERROUS SULFATE

REACTIONS (2)
  - Cardiac disorder [None]
  - Hospitalisation [None]
